FAERS Safety Report 18263199 (Version 1)
Quarter: 2020Q3

REPORT INFORMATION
  Report Type: Spontaneous
  Country: US (occurrence: US)
  Receive Date: 20200914
  Receipt Date: 20200914
  Transmission Date: 20201103
  Serious: Yes (Hospitalization)
  Sender: FDA-Public Use
  Company Number: None

PATIENT
  Sex: Male

DRUGS (1)
  1. ERLEADA [Suspect]
     Active Substance: APALUTAMIDE
     Indication: PROSTATE CANCER
     Route: 048
     Dates: start: 20181120

REACTIONS (6)
  - Thrombosis [None]
  - Sciatica [None]
  - Nausea [None]
  - Decreased appetite [None]
  - Aneurysm [None]
  - Post procedural complication [None]
